FAERS Safety Report 9114610 (Version 1)
Quarter: 2013Q1

REPORT INFORMATION
  Report Type: Spontaneous
  Country: BR (occurrence: BR)
  Receive Date: 20130128
  Receipt Date: 20130128
  Transmission Date: 20140127
  Serious: Yes (Other)
  Sender: FDA-Public Use
  Company Number: BR-ASTRAZENECA-2013SE04698

PATIENT
  Age: 71 Year
  Sex: Male

DRUGS (1)
  1. ATACAND HCT [Suspect]
     Dosage: 16/12.5 MG DAILY
     Route: 048

REACTIONS (2)
  - Coronary artery occlusion [Not Recovered/Not Resolved]
  - Weight decreased [Unknown]
